FAERS Safety Report 5418217-6 (Version None)
Quarter: 2007Q3

REPORT INFORMATION
  Report Type: 
  Country: None (occurrence: None)
  Receive Date: 20070817
  Receipt Date: 20070806
  Transmission Date: 20080115
  Serious: Yes (Other)
  Sender: FDA-Public Use
  Company Number: DE-ROCHE-508037

PATIENT
  Age: 61 Year
  Sex: Male
  Weight: 122 kg

DRUGS (8)
  1. GRANISETRON  HCL [Suspect]
     Indication: PREMEDICATION
     Route: 042
     Dates: start: 20070118
  2. AVASTIN [Suspect]
     Indication: COLORECTAL CANCER
     Route: 042
     Dates: start: 20070119, end: 20070705
  3. IRINOTECAN HCL [Suspect]
     Indication: COLORECTAL CANCER
     Route: 042
     Dates: start: 20070118
  4. FLUOROURACIL [Suspect]
     Indication: COLORECTAL CANCER
     Dosage: GIVEN OVER 24 HOURS.
     Route: 042
     Dates: start: 20070118
  5. DEXAMETHASONE [Suspect]
     Indication: PREMEDICATION
     Route: 042
     Dates: start: 20070118
  6. FOLINIC ACID [Concomitant]
     Indication: COLORECTAL CANCER
     Dates: start: 20070118
  7. KARVEZIDE [Concomitant]
     Dosage: REPORTED AS KARVECID.
  8. METFORMIN HCL [Concomitant]

REACTIONS (3)
  - GASTRIC HAEMORRHAGE [None]
  - NAUSEA [None]
  - VOMITING [None]
